FAERS Safety Report 7683976-9 (Version None)
Quarter: 2011Q3

REPORT INFORMATION
  Report Type: 
  Country: None (occurrence: None)
  Receive Date: 20110815
  Receipt Date: 20110719
  Transmission Date: 20111222
  Serious: No
  Sender: FDA-Public Use
  Company Number: US-BAYER-2011-064123

PATIENT
  Age: 57 Year
  Sex: Male
  Weight: 82 kg

DRUGS (6)
  1. CALCIUM CARBONATE [Concomitant]
  2. ALEVE (CAPLET) [Suspect]
     Indication: ARTHRITIS
     Dosage: 1 DF, BID
     Dates: start: 20110627
  3. PRILOSEC [Concomitant]
  4. LEVOXYL [Concomitant]
  5. VERAPAMIL [Concomitant]
  6. ASPIRIN [Concomitant]

REACTIONS (3)
  - ARTHRITIS [None]
  - NO ADVERSE EVENT [None]
  - CONSTIPATION [None]
